FAERS Safety Report 20599890 (Version 1)
Quarter: 2022Q1

REPORT INFORMATION
  Report Type: Spontaneous
  Country: CA (occurrence: CA)
  Receive Date: 20220316
  Receipt Date: 20220316
  Transmission Date: 20220424
  Serious: Yes (Other)
  Sender: FDA-Public Use
  Company Number: CA-OCTA-LIT01222CA

PATIENT
  Age: 46 Year
  Sex: Female

DRUGS (3)
  1. HUMAN IMMUNOGLOBULIN G [Suspect]
     Active Substance: HUMAN IMMUNOGLOBULIN G
     Indication: Thrombocytopenia
     Route: 042
  2. ARGATROBAN [Concomitant]
     Active Substance: ARGATROBAN
     Indication: Thrombocytopenia
  3. PREDNISONE [Concomitant]
     Active Substance: PREDNISONE
     Indication: Thrombocytopenia

REACTIONS (2)
  - Superior sagittal sinus thrombosis [Recovered/Resolved]
  - Headache [Recovered/Resolved]
